FAERS Safety Report 8130297-6 (Version None)
Quarter: 2012Q1

REPORT INFORMATION
  Report Type: 
  Country: None (occurrence: None)
  Receive Date: 20120210
  Receipt Date: 20120207
  Transmission Date: 20120608
  Serious: Yes (Other)
  Sender: FDA-Public Use
  Company Number: PHEH2011US011894

PATIENT
  Sex: Female
  Weight: 64.399 kg

DRUGS (4)
  1. ESTRADIOL [Suspect]
     Indication: HORMONE REPLACEMENT THERAPY
     Dosage: 0.1 MG, QW
     Route: 062
     Dates: start: 20110915, end: 20110918
  2. ESTRADERM [Suspect]
     Route: 062
  3. SYNTHROID [Concomitant]
  4. ALORA [Suspect]
     Dosage: 0.1 MG, QW2

REACTIONS (6)
  - DEHYDRATION [None]
  - VOMITING [None]
  - MALAISE [None]
  - DIARRHOEA [None]
  - DIZZINESS [None]
  - HEADACHE [None]
